FAERS Safety Report 19245800 (Version 3)
Quarter: 2022Q2

REPORT INFORMATION
  Report Type: Report from Study
  Country: BE (occurrence: None)
  Receive Date: 20210512
  Receipt Date: 20220512
  Transmission Date: 20220721
  Serious: Yes (Hospitalization, Other)
  Sender: FDA-Public Use
  Company Number: BE-ROCHE-2818847

PATIENT
  Age: 58 Year
  Sex: Male
  Weight: 101 kg

DRUGS (6)
  1. ATEZOLIZUMAB [Suspect]
     Active Substance: ATEZOLIZUMAB
     Indication: Rectal cancer
     Dosage: RECEIVED SUBSEQUENT DOSES OF ATEZOLIZUMAB ON 02/NOV/2020, 23/NOV/2020, 14/DEC/2020?DATE OF LAST DOSE
     Route: 042
     Dates: start: 20201013
  2. FLUOROURACIL [Suspect]
     Active Substance: FLUOROURACIL
     Indication: Rectal cancer
     Dosage: RECEIVED SUBSEQUENT DOSES OF 5-FU ON 05/OCT/2020, 13/OCT/2020, 19/OCT/2020, 26/OCT/2020?DATE OF LAST
     Route: 065
     Dates: start: 20200928
  3. GLUCOPHAGE [Concomitant]
     Active Substance: METFORMIN HYDROCHLORIDE
  4. ATORVASTATIN [Concomitant]
     Active Substance: ATORVASTATIN
  5. FOSFOMYCIN TROMETHAMINE [Concomitant]
     Active Substance: FOSFOMYCIN TROMETHAMINE
     Dates: start: 20201123
  6. IMODIUM [Concomitant]
     Active Substance: LOPERAMIDE HYDROCHLORIDE
     Dates: start: 20210311

REACTIONS (7)
  - Septic shock [Recovered/Resolved]
  - Herpes zoster infection neurological [Recovered/Resolved]
  - Nephrolithiasis [Recovered/Resolved]
  - Herpes zoster infection neurological [Recovered/Resolved]
  - Escherichia test positive [Unknown]
  - Wound dehiscence [Recovered/Resolved]
  - Pelvic fluid collection [Recovered/Resolved]

NARRATIVE: CASE EVENT DATE: 20210129
